FAERS Safety Report 18424312 (Version 2)
Quarter: 2020Q4

REPORT INFORMATION
  Report Type: Other
  Country: AE (occurrence: AE)
  Receive Date: 20201025
  Receipt Date: 20201030
  Transmission Date: 20210114
  Serious: Yes (Other)
  Sender: FDA-Public Use
  Company Number: AE-ROCHE-2700535

PATIENT
  Age: 67 Year
  Sex: Female

DRUGS (3)
  1. KADCYLA [Suspect]
     Active Substance: ADO-TRASTUZUMAB EMTANSINE
     Indication: BREAST CANCER METASTATIC
     Route: 042
     Dates: end: 20200910
  2. PERJETA [Concomitant]
     Active Substance: PERTUZUMAB
  3. HERCEPTIN [Concomitant]
     Active Substance: TRASTUZUMAB

REACTIONS (2)
  - Disease progression [Not Recovered/Not Resolved]
  - Drug ineffective [Unknown]

NARRATIVE: CASE EVENT DATE: 20201012
